FAERS Safety Report 16892551 (Version 3)
Quarter: 2019Q4

REPORT INFORMATION
  Report Type: Spontaneous
  Country: US (occurrence: US)
  Receive Date: 20191007
  Receipt Date: 20191119
  Transmission Date: 20200122
  Serious: No
  Sender: FDA-Public Use
  Company Number: US-PFIZER INC-2016554527

PATIENT
  Age: 60 Year
  Sex: Female
  Weight: 49.9 kg

DRUGS (12)
  1. MELOXICAM. [Concomitant]
     Active Substance: MELOXICAM
     Dosage: 15 MG, DAILY (15 MG TABLET15 MG PO (ORAL) DAILY )
     Route: 048
  2. NORCO [Concomitant]
     Active Substance: ACETAMINOPHEN\HYDROCODONE BITARTRATE
     Indication: PAIN
     Dosage: UNK, AS NEEDED (10 MG/325 MG TABLET 1 TAB PO Q8H (EVERY 8 HOURS) PRN (AS NEEDED))
     Route: 048
  3. PROZAC [Concomitant]
     Active Substance: FLUOXETINE HYDROCHLORIDE
     Indication: AFFECTIVE DISORDER
     Dosage: 40 MG, DAILY
     Route: 048
  4. XANAX [Concomitant]
     Active Substance: ALPRAZOLAM
     Indication: ANXIETY
     Dosage: 1 MG, AS NEEDED (1 MG TABLET 1 MG PO (ORAL) BRO PRN (AS NEEDED) )
     Route: 048
  5. PREMPRO [Concomitant]
     Active Substance: ESTROGENS, CONJUGATED\MEDROXYPROGESTERONE ACETATE
     Dosage: UNK UNK, DAILY (0.45 MG/1.5 MG TABLET1 TAB PO (ORAL) DAILY #3 PACK REF 3)
     Route: 048
  6. CHANTIX [Concomitant]
     Active Substance: VARENICLINE TARTRATE
     Indication: SMOKING CESSATION THERAPY
     Dosage: 1 MG, UNK (1 EACH TAB.DS.PK: 1 MG PO AS DIRECTED )
     Route: 048
  7. SYMBICORT-M [Concomitant]
     Dosage: UNK, 2X/DAY (160 MCG/4.5 MEG LNHALER2 LNH PO (ORAL) BID (TWICE A DAY))
     Route: 048
  8. CYCLOBENZAPRINE HCL [Concomitant]
     Active Substance: CYCLOBENZAPRINE HYDROCHLORIDE
     Dosage: 10 MG, 1X/DAY (10 MG TABLET10 MG PO (ORAL) QHS(BEFORE BED)  )
     Route: 048
  9. LYRICA [Suspect]
     Active Substance: PREGABALIN
     Dosage: 150 MG, 3X/DAY
     Route: 048
  10. LYRICA [Suspect]
     Active Substance: PREGABALIN
     Indication: FIBROMYALGIA
     Dosage: 100 MG, 3X/DAY (100 MG CAPSULE100 MG PO (ORAL) TLD)
     Route: 048
  11. CALCIUM 600 + VITAMIN D [Concomitant]
     Active Substance: CALCIUM\VITAMIN D
     Dosage: UNK UNK, DAILY (600 MG/400 LU CAPSULE1 CAP PO (ORAL) DAILY )
     Route: 048
  12. PROZAC [Concomitant]
     Active Substance: FLUOXETINE HYDROCHLORIDE
     Indication: DECREASED APPETITE

REACTIONS (2)
  - Feeling abnormal [Unknown]
  - Pollakiuria [Not Recovered/Not Resolved]
